FAERS Safety Report 7979699-9 (Version None)
Quarter: 2011Q4

REPORT INFORMATION
  Report Type: 
  Country: None (occurrence: None)
  Receive Date: 20111214
  Receipt Date: 20111209
  Transmission Date: 20120403
  Serious: Yes (Hospitalization)
  Sender: FDA-Public Use
  Company Number: US-ROCHE-1021158

PATIENT
  Sex: Female

DRUGS (24)
  1. BONIVA [Suspect]
     Dates: start: 20100101, end: 20110501
  2. VITAMIN D [Concomitant]
  3. KEPPRA [Concomitant]
  4. DILANTIN [Concomitant]
  5. DOCUSATE [Concomitant]
  6. BONIVA [Suspect]
     Indication: OSTEOPOROSIS
     Route: 042
     Dates: start: 20080101, end: 20090101
  7. HYDROXYZINE [Concomitant]
  8. REGLAN [Concomitant]
  9. BACTROBAN [Concomitant]
  10. HYDROCHLOROTHIAZIDE [Concomitant]
  11. LEVOTHYROXINE SODIUM [Concomitant]
  12. MAGNESIUM OXIDE [Concomitant]
  13. MULTI-VITAMIN [Concomitant]
  14. FIBROLAX [Concomitant]
  15. CLOTRIMAZOLE [Concomitant]
  16. FLUTICASONE PROPIONATE [Concomitant]
  17. PROTONIX [Concomitant]
  18. POTASSIUM CHLORIDE [Concomitant]
  19. VALPROIC ACID [Concomitant]
  20. CALCIUM GLUBIONATE [Suspect]
     Indication: PRODUCT USED FOR UNKNOWN INDICATION
     Route: 048
  21. ALBUTEROL [Concomitant]
  22. LORATADINE [Concomitant]
  23. SIMETHICONE [Concomitant]
  24. ZINC OXIDE OINTMENT [Concomitant]

REACTIONS (1)
  - FEMUR FRACTURE [None]
